FAERS Safety Report 13213536 (Version 1)
Quarter: 2017Q1

REPORT INFORMATION
  Report Type: Spontaneous
  Country: US (occurrence: US)
  Receive Date: 20170210
  Receipt Date: 20170210
  Transmission Date: 20170428
  Serious: No
  Sender: FDA-Public Use
  Company Number: US-PERRIGO-16US019201

PATIENT
  Age: 69 Year
  Sex: Female
  Weight: 80.73 kg

DRUGS (5)
  1. AMLODIPINE [Concomitant]
     Active Substance: AMLODIPINE BESYLATE
     Indication: HYPERTENSION
     Dosage: UNK
     Route: 065
  2. RAMIPRIL. [Concomitant]
     Active Substance: RAMIPRIL
     Indication: HYPERTENSION
     Dosage: UNK
     Route: 065
  3. TRETINOIN. [Suspect]
     Active Substance: TRETINOIN
     Dosage: PEA SIZE, SINGLE
     Route: 061
     Dates: start: 20160814, end: 20160814
  4. TRETINOIN. [Suspect]
     Active Substance: TRETINOIN
     Indication: ACNE
     Dosage: PEA SIZE, QHS
     Route: 061
     Dates: start: 1996, end: 201602
  5. FOSAMAX [Concomitant]
     Active Substance: ALENDRONATE SODIUM
     Indication: BONE DENSITY DECREASED
     Dosage: UNK
     Route: 065

REACTIONS (6)
  - Application site papules [Unknown]
  - Application site pruritus [Recovered/Resolved]
  - Application site dryness [Unknown]
  - Skin wrinkling [Unknown]
  - Application site erythema [Unknown]
  - Ocular hyperaemia [Unknown]

NARRATIVE: CASE EVENT DATE: 2014
